FAERS Safety Report 9196311 (Version 1)
Quarter: 2013Q1

REPORT INFORMATION
  Report Type: Spontaneous
  Country: US (occurrence: None)
  Receive Date: 20120709
  Receipt Date: 20120709
  Transmission Date: 20140127
  Serious: No
  Sender: FDA-Public Use
  Company Number: 2012HGS-003495

PATIENT
  Sex: Female
  Weight: 52.16 kg

DRUGS (4)
  1. BENLYSTA [Suspect]
     Indication: SYSTEMIC LUPUS ERYTHEMATOSUS
     Dosage: 10 MG/KG, INTRAVENOUS
     Route: 042
     Dates: start: 200604
  2. PREDNISONE (PREDNISONE) (PREDNISONE) [Concomitant]
  3. PLAQUENIL (HYDROXYCHLOROQUINE PHOSPHATE)) (HYDROXYCHLOROQUINE PHOSPHATE) [Concomitant]
  4. DICTOFENAC (DICLOFENAC) (DICLOFENAC) [Concomitant]

REACTIONS (5)
  - Hypersensitivity [None]
  - Rash papular [None]
  - Rash pruritic [None]
  - Hypoaesthesia oral [None]
  - Paraesthesia oral [None]
